FAERS Safety Report 19819406 (Version 4)
Quarter: 2021Q3

REPORT INFORMATION
  Report Type: Spontaneous
  Country: US (occurrence: US)
  Receive Date: 20210913
  Receipt Date: 20210930
  Transmission Date: 20211014
  Serious: No
  Sender: FDA-Public Use
  Company Number: US-STRONGBRIDGE BIOPHARMA-2021-STR-000303

PATIENT
  Sex: Female

DRUGS (2)
  1. KEVEYIS [Suspect]
     Active Substance: DICHLORPHENAMIDE
     Indication: FAMILIAL PERIODIC PARALYSIS
     Dosage: 75 MG, BID
     Route: 048
     Dates: start: 20170728
  2. POTASSIUM [Concomitant]
     Active Substance: POTASSIUM
     Indication: PRODUCT USED FOR UNKNOWN INDICATION

REACTIONS (16)
  - Incorrect dose administered [Recovering/Resolving]
  - Concussion [Recovered/Resolved]
  - Disease recurrence [Recovering/Resolving]
  - Depressed mood [Recovering/Resolving]
  - Dizziness [Recovering/Resolving]
  - Fall [Recovering/Resolving]
  - Head injury [Recovering/Resolving]
  - Sensory overload [Recovering/Resolving]
  - Vertigo [Recovering/Resolving]
  - Wrong technique in product usage process [Unknown]
  - Diplopia [Recovering/Resolving]
  - Panic attack [Unknown]
  - Blood potassium decreased [Recovering/Resolving]
  - Condition aggravated [Unknown]
  - Extraocular muscle paresis [Recovering/Resolving]
  - Blood potassium decreased [Unknown]
